FAERS Safety Report 4660971-5 (Version None)
Quarter: 2005Q2

REPORT INFORMATION
  Report Type: 
  Country: None (occurrence: None)
  Receive Date: 20050511
  Receipt Date: 20050426
  Transmission Date: 20051028
  Serious: Yes (Disabling)
  Sender: FDA-Public Use
  Company Number: 200408192

PATIENT
  Age: 56 Year
  Sex: Female

DRUGS (24)
  1. BOTOX [Suspect]
     Indication: FACIAL SPASM
     Route: 030
     Dates: start: 19950101, end: 20010101
  2. BOTOX [Suspect]
     Indication: FACIAL SPASM
     Dosage: 35 UNITS ONCE IM
     Route: 030
     Dates: start: 20020228, end: 20020228
  3. BOTOX [Suspect]
     Indication: FACIAL SPASM
     Dosage: 37.5 UNITS ONCE IM
     Route: 030
     Dates: start: 20020813, end: 20020813
  4. ACIPHEX [Concomitant]
  5. VALTREX [Concomitant]
  6. PREDNISONE [Concomitant]
  7. ACYCLOVIR [Concomitant]
  8. ALPRAZOLAM [Concomitant]
  9. HYOSCYAMINE [Concomitant]
  10. NORTIPTYLINE [Concomitant]
  11. MONODOX [Concomitant]
  12. ESTRATEST H.S. [Concomitant]
  13. CEPHALEXIN [Concomitant]
  14. ZYRTEC [Concomitant]
  15. CLOBETASOL [Concomitant]
  16. NEURONTIN [Concomitant]
  17. MAXALT [Concomitant]
  18. PREMARIN [Concomitant]
  19. ZANTAC [Concomitant]
  20. ASPIRIN [Concomitant]
  21. CARAFATE [Concomitant]
  22. CELEBREX [Concomitant]
  23. PREVACID [Concomitant]
  24. PRILOSEC [Concomitant]

REACTIONS (28)
  - ANXIETY [None]
  - ASTHENIA [None]
  - BURNING SENSATION [None]
  - CHOKING [None]
  - DROOLING [None]
  - DYSARTHRIA [None]
  - DYSGEUSIA [None]
  - EPICONDYLITIS [None]
  - EXOSTOSIS [None]
  - EYE INFLAMMATION [None]
  - FACIAL NERVE DISORDER [None]
  - FACIAL PALSY [None]
  - FALL [None]
  - HYPOAESTHESIA [None]
  - MUSCLE SPASMS [None]
  - MUSCLE TWITCHING [None]
  - NERVE COMPRESSION [None]
  - NERVE INJURY [None]
  - NEUROPATHY PERIPHERAL [None]
  - OSTEOARTHRITIS [None]
  - OSTEOSCLEROSIS [None]
  - PELVIC ORGAN INJURY [None]
  - PHOTOPHOBIA [None]
  - PSORIATIC ARTHROPATHY [None]
  - RETCHING [None]
  - SENSORY LOSS [None]
  - SKIN ODOUR ABNORMAL [None]
  - VIITH NERVE INJURY [None]
